FAERS Safety Report 19684976 (Version 1)
Quarter: 2021Q3

REPORT INFORMATION
  Report Type: Spontaneous
  Country: US (occurrence: US)
  Receive Date: 20210810
  Receipt Date: 20210810
  Transmission Date: 20211014
  Serious: Yes (Other)
  Sender: FDA-Public Use
  Company Number: None

PATIENT
  Age: 74 Year
  Sex: Male
  Weight: 88.45 kg

DRUGS (8)
  1. GABAPENTIN. [Suspect]
     Active Substance: GABAPENTIN
     Indication: BACK PAIN
     Dosage: ?          QUANTITY:1 DF DOSAGE FORM;?
     Route: 048
     Dates: start: 20210317, end: 20210329
  2. METHOTREXATE. [Concomitant]
     Active Substance: METHOTREXATE
  3. ATORVASTATIN [Concomitant]
     Active Substance: ATORVASTATIN
  4. NAPROXEN. [Concomitant]
     Active Substance: NAPROXEN
  5. PREDNISONE. [Concomitant]
     Active Substance: PREDNISONE
  6. LISINOPRIL. [Concomitant]
     Active Substance: LISINOPRIL
  7. GABAPENTIN. [Suspect]
     Active Substance: GABAPENTIN
     Indication: PROCEDURAL PAIN
     Dosage: ?          QUANTITY:1 DF DOSAGE FORM;?
     Route: 048
     Dates: start: 20210317, end: 20210329
  8. METAPROLOL [Concomitant]
     Active Substance: METOPROLOL

REACTIONS (6)
  - Hallucination [None]
  - Asthenia [None]
  - Dyspnoea [None]
  - Heart rate irregular [None]
  - Peripheral swelling [None]
  - Loss of consciousness [None]
